FAERS Safety Report 4972863-2 (Version None)
Quarter: 2006Q2

REPORT INFORMATION
  Report Type: 
  Country: None (occurrence: None)
  Receive Date: 20060414
  Receipt Date: 20060405
  Transmission Date: 20061013
  Serious: Yes (Other)
  Sender: FDA-Public Use
  Company Number: US-BRACCO-BDI-008105

PATIENT
  Age: 62 Year
  Sex: Female

DRUGS (5)
  1. ISOVUE-128 [Suspect]
     Indication: ABSCESS
     Route: 042
     Dates: start: 20060404, end: 20060404
  2. ISOVUE-128 [Suspect]
     Route: 042
     Dates: start: 20060404, end: 20060404
  3. ALBUTEROL [Interacting]
     Route: 055
  4. HEPARIN [Concomitant]
     Route: 050
  5. INSULIN [Concomitant]
     Route: 050

REACTIONS (2)
  - RESPIRATORY ARREST [None]
  - VOMITING [None]
